FAERS Safety Report 5592526-2 (Version None)
Quarter: 2008Q1

REPORT INFORMATION
  Report Type: 
  Country: None (occurrence: None)
  Receive Date: 20080111
  Receipt Date: 20080107
  Transmission Date: 20080703
  Serious: Yes (Death)
  Sender: FDA-Public Use
  Company Number: 2008SP000168

PATIENT
  Age: 69 Year
  Sex: Female
  Weight: 61 kg

DRUGS (1)
  1. TEMODAL [Suspect]
     Indication: GLIOBLASTOMA
     Dosage: ;QD;PO
     Route: 048
     Dates: start: 20060814, end: 20061030

REACTIONS (3)
  - GLIOBLASTOMA [None]
  - MALIGNANT NEOPLASM PROGRESSION [None]
  - SEPSIS [None]
